FAERS Safety Report 23977641 (Version 2)
Quarter: 2024Q3

REPORT INFORMATION
  Report Type: Spontaneous
  Country: NL (occurrence: NL)
  Receive Date: 20240614
  Receipt Date: 20240705
  Transmission Date: 20241016
  Serious: Yes (Other)
  Sender: TEVA
  Company Number: NL-TEVA-VS-3208859

PATIENT
  Age: 51 Year
  Sex: Female

DRUGS (1)
  1. AJOVY [Suspect]
     Active Substance: FREMANEZUMAB-VFRM
     Indication: Product used for unknown indication
     Route: 065
     Dates: start: 20230803

REACTIONS (2)
  - Idiopathic intracranial hypertension [Unknown]
  - Papilloedema [Unknown]

NARRATIVE: CASE EVENT DATE: 20240415
